FAERS Safety Report 8278227 (Version 6)
Quarter: 2013Q4

REPORT INFORMATION
  Report Type: Spontaneous
  Country: US (occurrence: US)
  Receive Date: 20111207
  Receipt Date: 20131217
  Transmission Date: 20140711
  Serious: Yes (Hospitalization, Disabling, Other)
  Sender: FDA-Public Use
  Company Number: US-009507513-1112USA00612

PATIENT
  Sex: Male
  Weight: 95.62 kg

DRUGS (8)
  1. FOSAMAX [Suspect]
     Indication: OSTEOPOROSIS
     Dosage: 10 MG, QW
     Route: 048
     Dates: start: 199812, end: 200304
  2. FOSAMAX [Suspect]
     Indication: OSTEOPENIA
     Dosage: 10 MG, QD
     Route: 048
     Dates: start: 19981203
  3. FOSAMAX [Suspect]
     Dosage: 10 MG, QD
     Route: 048
     Dates: start: 20000411, end: 20030422
  4. FOSAMAX [Suspect]
     Dosage: 70 MG, QW
     Route: 048
     Dates: start: 20030520, end: 200511
  5. FOSAMAX [Suspect]
     Dosage: 10 MG, QW
     Route: 048
     Dates: start: 200512, end: 200512
  6. FOSAMAX [Suspect]
     Dosage: 10 MG, QD
     Route: 048
     Dates: start: 20051206, end: 20090915
  7. PERCOCET [Concomitant]
     Indication: BACK PAIN
     Dosage: 5 MG, TID
  8. MIACALCIN [Concomitant]
     Indication: OSTEOPOROSIS

REACTIONS (31)
  - Femur fracture [Unknown]
  - Lumbar spinal stenosis [Unknown]
  - Osteoporosis [Unknown]
  - Osteomyelitis [Unknown]
  - Hand fracture [Unknown]
  - Hand fracture [Unknown]
  - Staphylococcal osteomyelitis [Unknown]
  - Spinal compression fracture [Unknown]
  - Spinal compression fracture [Unknown]
  - Foot fracture [Unknown]
  - Foot fracture [Unknown]
  - Rib fracture [Unknown]
  - Tooth disorder [Unknown]
  - Type 2 diabetes mellitus [Unknown]
  - Nephrolithiasis [Unknown]
  - Fracture nonunion [Unknown]
  - Limb injury [Unknown]
  - Infusion site erythema [Unknown]
  - Infusion site discomfort [Unknown]
  - Cellulitis [Unknown]
  - Kyphosis [Unknown]
  - Spinal cord compression [Unknown]
  - Haemangioma [Unknown]
  - Hyporeflexia [Unknown]
  - Spinal fracture [Unknown]
  - Ankle fracture [Unknown]
  - Wrist fracture [Unknown]
  - Low turnover osteopathy [Unknown]
  - Exostosis [Unknown]
  - Osteoarthritis [Unknown]
  - Gastrooesophageal reflux disease [Unknown]
